FAERS Safety Report 11858815 (Version 2)
Quarter: 2016Q2

REPORT INFORMATION
  Report Type: Report from Study
  Country: CZ (occurrence: CZ)
  Receive Date: 20151222
  Receipt Date: 20160518
  Transmission Date: 20160815
  Serious: Yes (Hospitalization)
  Sender: FDA-Public Use
  Company Number: CZ-BIOGEN-2015BI00162610

PATIENT
  Age: 34 Year
  Sex: Female
  Weight: 54 kg

DRUGS (6)
  1. EUTHYROX [Concomitant]
     Active Substance: LEVOTHYROXINE SODIUM
     Indication: HYPOTHYROIDISM
     Route: 048
     Dates: start: 2005
  2. BG00012 [Suspect]
     Active Substance: DIMETHYL FUMARATE
     Indication: MULTIPLE SCLEROSIS
     Route: 048
     Dates: start: 20101123
  3. KREON [Concomitant]
     Active Substance: PANCRELIPASE
     Dosage: 25000
     Route: 048
  4. BG00012 [Suspect]
     Active Substance: DIMETHYL FUMARATE
     Route: 048
     Dates: start: 20150521, end: 20150610
  5. BG00012 [Suspect]
     Active Substance: DIMETHYL FUMARATE
     Route: 048
     Dates: start: 20150819
  6. KREON [Concomitant]
     Active Substance: PANCRELIPASE
     Indication: PANCREATIC ENZYMES
     Route: 048
     Dates: start: 20150617

REACTIONS (1)
  - Benign pancreatic neoplasm [Recovered/Resolved]

NARRATIVE: CASE EVENT DATE: 20150610
